FAERS Safety Report 7750311-7 (Version None)
Quarter: 2011Q3

REPORT INFORMATION
  Report Type: 
  Country: None (occurrence: None)
  Receive Date: 20110914
  Receipt Date: 20110901
  Transmission Date: 20111222
  Serious: Yes (Hospitalization)
  Sender: FDA-Public Use
  Company Number: US-ELI_LILLY_AND_COMPANY-US201104005837

PATIENT
  Sex: Female

DRUGS (18)
  1. FORTEO [Suspect]
     Dosage: 20 UG, QD
  2. FORTEO [Suspect]
     Dosage: 20 UG, QD
  3. PERCOCET [Concomitant]
     Indication: PAIN
     Dosage: 1-2 TABLETS 4-6 HOURS
  4. VITAMIN B-12 [Concomitant]
  5. CRESTOR [Concomitant]
     Dosage: 10 MG, QD
  6. TOPAMAX [Concomitant]
     Dosage: 25 MG, QD
  7. FORTEO [Suspect]
     Indication: OSTEOPOROSIS
     Dosage: 20 UG, QD
     Dates: start: 20110412
  8. MOBIC [Concomitant]
     Dosage: 15 MG, QD
  9. CALCIUM CARBONATE [Concomitant]
  10. PAMELOR [Concomitant]
  11. ZOCOR [Concomitant]
  12. PRILOSEC [Concomitant]
  13. ASPIRIN [Concomitant]
     Dosage: 325 MG, QD
  14. FORTEO [Suspect]
     Dosage: 20 UG, QD
  15. OMEPRAZOLE [Concomitant]
     Dosage: UNK, QD
  16. ANTIACID [Concomitant]
  17. FORTEO [Suspect]
     Dosage: 20 UG, QD
     Dates: end: 20110601
  18. COLACE [Concomitant]
     Dosage: 100 MG, BID

REACTIONS (15)
  - JOINT SWELLING [None]
  - FLATULENCE [None]
  - VOMITING [None]
  - PAIN IN EXTREMITY [None]
  - OSTEOPOROSIS [None]
  - MEMORY IMPAIRMENT [None]
  - MUSCLE SPASMS [None]
  - ARTHROPATHY [None]
  - SOMNOLENCE [None]
  - NAUSEA [None]
  - FEAR [None]
  - HEADACHE [None]
  - ARTHRALGIA [None]
  - PAIN [None]
  - CONSTIPATION [None]
